FAERS Safety Report 6628035-9 (Version None)
Quarter: 2010Q1

REPORT INFORMATION
  Report Type: 
  Country: None (occurrence: None)
  Receive Date: 20100311
  Receipt Date: 20090707
  Transmission Date: 20100710
  Serious: No
  Sender: FDA-Public Use
  Company Number: A0795712A

PATIENT
  Age: 23 Year
  Sex: Female

DRUGS (1)
  1. NICORETTE (MINT) [Suspect]
     Dates: start: 20090628, end: 20090705

REACTIONS (2)
  - GINGIVAL DISCOLOURATION [None]
  - PARAESTHESIA ORAL [None]
